FAERS Safety Report 16347515 (Version 1)
Quarter: 2019Q3

REPORT INFORMATION
  Report Type: Spontaneous
  Country: US (occurrence: US)
  Receive Date: 20190522
  Receipt Date: 20190522
  Transmission Date: 20191004
  Serious: Yes (Hospitalization)
  Sender: FDA-Public Use
  Company Number: None

PATIENT
  Sex: Female

DRUGS (15)
  1. ENBREL [Suspect]
     Active Substance: ETANERCEPT
     Indication: RHEUMATOID ARTHRITIS
     Dosage: ?          OTHER FREQUENCY:QW;?
     Route: 058
     Dates: start: 20181129
  2. TIZANIDINE. [Concomitant]
     Active Substance: TIZANIDINE
  3. LOSARTAN. [Concomitant]
     Active Substance: LOSARTAN
  4. MULTIVITAMIN [Concomitant]
     Active Substance: VITAMINS
  5. OXYCODONE [Concomitant]
     Active Substance: OXYCODONE
  6. PRISTIQ EXTENDED-RELEASE [Concomitant]
     Active Substance: DESVENLAFAXINE SUCCINATE
  7. L THYROXINE [Concomitant]
     Active Substance: LEVOTHYROXINE SODIUM
  8. SYMBICORT [Concomitant]
     Active Substance: BUDESONIDE\FORMOTEROL FUMARATE DIHYDRATE
  9. ATORVASTATIN [Concomitant]
     Active Substance: ATORVASTATIN
  10. MONTELUKAST [Concomitant]
     Active Substance: MONTELUKAST SODIUM
  11. HUMIRA [Suspect]
     Active Substance: ADALIMUMAB
  12. XELJANZ [Concomitant]
     Active Substance: TOFACITINIB CITRATE
  13. FUROSEMIDE. [Concomitant]
     Active Substance: FUROSEMIDE
  14. LANSOPRAZOLE. [Concomitant]
     Active Substance: LANSOPRAZOLE
  15. AZATHOPRINE [Concomitant]
     Active Substance: AZATHIOPRINE

REACTIONS (2)
  - Treatment failure [None]
  - Malaise [None]
